FAERS Safety Report 7634021-2 (Version None)
Quarter: 2011Q3

REPORT INFORMATION
  Report Type: 
  Country: None (occurrence: None)
  Receive Date: 20110725
  Receipt Date: 20110722
  Transmission Date: 20111222
  Serious: Yes (Death)
  Sender: FDA-Public Use
  Company Number: IT-PFIZER INC-2011148663

PATIENT
  Age: 56 Year
  Sex: Female

DRUGS (8)
  1. CYCLOPHOSPHAMIDE [Suspect]
     Indication: NON-HODGKIN'S LYMPHOMA
     Dosage: 844.4 MG, UNK
     Route: 040
     Dates: start: 20110413, end: 20110413
  2. VINCRISTINE [Suspect]
     Indication: NON-HODGKIN'S LYMPHOMA
     Dosage: 1.05 MG, UNK
     Route: 040
     Dates: start: 20110413, end: 20110413
  3. DOXORUBICIN HCL [Suspect]
     Indication: NON-HODGKIN'S LYMPHOMA
     Dosage: 18.76 MG, UNK
     Route: 040
     Dates: start: 20110413, end: 20110413
  4. PREDNISONE [Suspect]
     Indication: NON-HODGKIN'S LYMPHOMA
     Dosage: 37.5 MG, 1X/DAY
     Route: 048
     Dates: start: 20110419, end: 20110503
  5. ALLOPURINOL [Concomitant]
     Indication: HYPERURICAEMIA
     Dosage: 600 MG
     Route: 048
  6. ZOFRAN [Concomitant]
     Indication: PROPHYLAXIS OF NAUSEA AND VOMITING
     Dosage: 8 MG
     Route: 040
     Dates: start: 20110413, end: 20110413
  7. SOLU-MEDROL [Suspect]
     Indication: NON-HODGKIN'S LYMPHOMA
     Dosage: 80 MG, 1X/DAY
     Route: 042
     Dates: start: 20110414, end: 20110417
  8. DEXAMETHASONE PHOSPHATE [Concomitant]
     Indication: PROPHYLAXIS OF NAUSEA AND VOMITING
     Dosage: 20 MG
     Route: 040
     Dates: start: 20110413, end: 20110413

REACTIONS (3)
  - CHOLANGITIS [None]
  - PNEUMONIA [None]
  - ENDOCARDITIS [None]
